FAERS Safety Report 5401836-0 (Version None)
Quarter: 2007Q3

REPORT INFORMATION
  Report Type: 
  Country: None (occurrence: None)
  Receive Date: 20070731
  Receipt Date: 20070724
  Transmission Date: 20080115
  Serious: Yes (Hospitalization)
  Sender: FDA-Public Use
  Company Number: JP-ALLERGAN-0707419US

PATIENT
  Sex: Male
  Weight: 17 kg

DRUGS (10)
  1. ALESION SYRUP [Suspect]
     Indication: RHINITIS ALLERGIC
     Dosage: 0.75 G, QD
     Route: 048
     Dates: start: 20061222, end: 20061228
  2. ALESION SYRUP [Suspect]
     Dosage: 0.75 G, QD
     Route: 048
     Dates: start: 20070206, end: 20070210
  3. ALESION SYRUP [Suspect]
     Dosage: 0.75 G, QD
     Route: 048
     Dates: start: 20070310, end: 20070316
  4. MUCODYNE [Concomitant]
     Indication: DRUG USE FOR UNKNOWN INDICATION
     Dosage: 0.9 G, UNK
     Route: 048
     Dates: start: 20061222, end: 20070316
  5. ACETAMINOPHEN [Concomitant]
     Indication: PYREXIA
  6. MUCOSAL [Concomitant]
     Dosage: 0.9 G, UNK
     Route: 048
     Dates: start: 20061222, end: 20070210
  7. ASVERIN [Concomitant]
     Dosage: 0.3 G, UNK
     Route: 048
     Dates: start: 20070206, end: 20070210
  8. HOKUNALIN [Concomitant]
     Dosage: 0.5 G, UNK
     Route: 048
     Dates: start: 20070206, end: 20070210
  9. TRANSAMIN [Concomitant]
     Indication: DRUG USE FOR UNKNOWN INDICATION
     Dosage: 0.9 G, UNK
     Route: 042
     Dates: start: 20070310, end: 20070316
  10. INTAL [Concomitant]
     Route: 055
     Dates: start: 20070310

REACTIONS (2)
  - HEPATITIS [None]
  - PHARYNGITIS [None]
